FAERS Safety Report 9529539 (Version 1)
Quarter: 2013Q2

REPORT INFORMATION
  Report Type: Spontaneous
  Country: US (occurrence: None)
  Receive Date: 20130402
  Receipt Date: 20130402
  Transmission Date: 20140414
  Serious: Yes (Other)
  Sender: FDA-Public Use
  Company Number: RB-49947-2013

PATIENT
  Sex: Female

DRUGS (1)
  1. SUBOXONE 8 MG [Suspect]
     Indication: DRUG DEPENDENCE
     Dosage: SUBOXONE FILM SUBLINGUAL   TO CONTINUING??
     Route: 060
     Dates: start: 201211

REACTIONS (2)
  - Tongue blistering [None]
  - Swollen tongue [None]
